FAERS Safety Report 17502243 (Version 1)
Quarter: 2020Q1

REPORT INFORMATION
  Report Type: Spontaneous
  Country: US (occurrence: US)
  Receive Date: 20200305
  Receipt Date: 20200305
  Transmission Date: 20200409
  Serious: Yes (Hospitalization)
  Sender: FDA-Public Use
  Company Number: US-BAYER-2020-035992

PATIENT
  Age: 59 Year
  Sex: Male

DRUGS (1)
  1. NEXAVAR [Suspect]
     Active Substance: SORAFENIB
     Indication: HEPATIC CANCER
     Dosage: UNK

REACTIONS (6)
  - Abdominal pain [None]
  - Drug ineffective [None]
  - Fatigue [None]
  - Diarrhoea [Not Recovered/Not Resolved]
  - Lethargy [None]
  - Decreased appetite [None]
